FAERS Safety Report 21117905 (Version 1)
Quarter: 2022Q3

REPORT INFORMATION
  Report Type: Spontaneous
  Country: FR (occurrence: FR)
  Receive Date: 20220722
  Receipt Date: 20220722
  Transmission Date: 20221026
  Serious: Yes (Hospitalization)
  Sender: FDA-Public Use
  Company Number: FR-SUN PHARMACEUTICAL INDUSTRIES LTD-2022RR-345704

PATIENT
  Age: 74 Year
  Sex: Female
  Weight: 85 kg

DRUGS (1)
  1. NOREPINEPHRINE [Suspect]
     Active Substance: NOREPINEPHRINE
     Indication: Anaesthesia
     Dosage: UNK
     Route: 065
     Dates: start: 20220524, end: 20220524

REACTIONS (4)
  - Skin necrosis [Recovered/Resolved with Sequelae]
  - Injection site oedema [Recovered/Resolved with Sequelae]
  - Extravasation [Recovered/Resolved with Sequelae]
  - Product administration error [Recovered/Resolved]

NARRATIVE: CASE EVENT DATE: 20220524
